FAERS Safety Report 9956705 (Version 1)
Quarter: 2014Q1

REPORT INFORMATION
  Report Type: Report from Study
  Country: US (occurrence: US)
  Receive Date: 20140304
  Receipt Date: 20140304
  Transmission Date: 20141002
  Serious: No
  Sender: FDA-Public Use
  Company Number: US-ABBVIE-13P-163-1092928-00

PATIENT
  Age: 47 Year
  Sex: Female

DRUGS (10)
  1. HUMIRA [Suspect]
     Indication: PSORIASIS
     Dates: start: 20130422
  2. CYCLO EYE DROPS [Concomitant]
     Indication: MYDRIASIS
  3. AZOPT [Concomitant]
     Indication: SENSATION OF PRESSURE
     Dosage: EYE DROPS
  4. AZOPT [Concomitant]
     Indication: GLAUCOMA
  5. VALACYCLOVIR HCL PHARMA PAC [Concomitant]
     Indication: PSORIASIS
     Dosage: 1 GM TABLET DAILY
  6. PREDNISOLONE EYE GTTS [Concomitant]
     Indication: PRODUCT USED FOR UNKNOWN INDICATION
     Dosage: RIGHT EYE
  7. LATANOPROST [Concomitant]
     Indication: PRODUCT USED FOR UNKNOWN INDICATION
     Dosage: EYE DROP (RIGHT EYE) AT NIGHT
  8. PATADAY [Concomitant]
     Indication: HYPERSENSITIVITY
     Dosage: EYE DROPS IN BOTH EYES, THE MORNING
  9. PROAIR HFA [Concomitant]
     Indication: OBSTRUCTIVE AIRWAYS DISORDER
  10. SPIRIVA [Concomitant]
     Indication: DYSPNOEA

REACTIONS (5)
  - Injection site pain [Recovered/Resolved]
  - Injection site bruising [Recovered/Resolved]
  - Injection site haemorrhage [Recovered/Resolved]
  - Injection site erythema [Recovering/Resolving]
  - Injection site bruising [Recovering/Resolving]
